FAERS Safety Report 7208439-6 (Version None)
Quarter: 2011Q1

REPORT INFORMATION
  Report Type: 
  Country: None (occurrence: None)
  Receive Date: 20110104
  Receipt Date: 20101221
  Transmission Date: 20110831
  Serious: Yes (Other)
  Sender: FDA-Public Use
  Company Number: PHHY2010JP82834

PATIENT
  Sex: Female

DRUGS (1)
  1. RASILEZ [Suspect]
     Indication: HYPERTENSION
     Dosage: 150 MG DAILY
     Route: 048

REACTIONS (3)
  - DIARRHOEA [None]
  - GLOMERULAR FILTRATION RATE DECREASED [None]
  - RENAL FAILURE CHRONIC [None]
